FAERS Safety Report 9908534 (Version 1)
Quarter: 2014Q1

REPORT INFORMATION
  Report Type: Report from Study
  Country: US (occurrence: US)
  Receive Date: 20140219
  Receipt Date: 20140219
  Transmission Date: 20141002
  Serious: Yes (Other)
  Sender: FDA-Public Use
  Company Number: US-ROCHE-1346635

PATIENT
  Sex: Female

DRUGS (4)
  1. AVASTIN [Suspect]
     Indication: AGE-RELATED MACULAR DEGENERATION
     Route: 050
  2. TEARS NATURALE [Concomitant]
  3. BABY ASPIRIN [Concomitant]
  4. ZESTORETIC [Concomitant]

REACTIONS (3)
  - Eye irritation [Unknown]
  - Visual impairment [Unknown]
  - Off label use [Unknown]
